FAERS Safety Report 20501549 (Version 14)
Quarter: 2024Q2

REPORT INFORMATION
  Report Type: Spontaneous
  Country: US (occurrence: US)
  Receive Date: 20220222
  Receipt Date: 20240621
  Transmission Date: 20240716
  Serious: Yes (Hospitalization, Other)
  Sender: FDA-Public Use
  Company Number: US-PFIZER INC-202200276560

PATIENT
  Age: 79 Year
  Sex: Female
  Weight: 74.84 kg

DRUGS (5)
  1. IBRANCE [Suspect]
     Active Substance: PALBOCICLIB
     Indication: Breast cancer metastatic
     Dosage: 125 MG
     Dates: start: 20201201
  2. IBRANCE [Suspect]
     Active Substance: PALBOCICLIB
     Indication: Breast cancer female
     Dosage: UNK
     Dates: start: 20220221
  3. IBRANCE [Suspect]
     Active Substance: PALBOCICLIB
     Dosage: 125 MG
     Dates: start: 20220321
  4. IBRANCE [Suspect]
     Active Substance: PALBOCICLIB
     Dosage: 125 MG, CYCLIC (ONCE A DAY FOR THREE WEEKS AND THEN A WEEK OFF)
  5. TRINTELLIX [Concomitant]
     Active Substance: VORTIOXETINE HYDROBROMIDE
     Indication: Antidepressant therapy
     Dosage: 20 MG, 1X/DAY
     Route: 048

REACTIONS (16)
  - Atrial fibrillation [Unknown]
  - Mental impairment [Unknown]
  - Pleural effusion [Recovering/Resolving]
  - Thrombocytopenia [Unknown]
  - Foot fracture [Recovering/Resolving]
  - Acne [Not Recovered/Not Resolved]
  - Alopecia [Unknown]
  - Decreased appetite [Unknown]
  - Skin haemorrhage [Not Recovered/Not Resolved]
  - Skin lesion [Not Recovered/Not Resolved]
  - Urticaria [Unknown]
  - Pruritus [Unknown]
  - Fatigue [Unknown]
  - Nervous system disorder [Unknown]
  - Gait disturbance [Unknown]
  - Product dose omission issue [Unknown]
